FAERS Safety Report 10787119 (Version 3)
Quarter: 2019Q3

REPORT INFORMATION
  Report Type: Spontaneous
  Country: US (occurrence: US)
  Receive Date: 20150211
  Receipt Date: 20190709
  Transmission Date: 20191004
  Serious: Yes (Other)
  Sender: FDA-Public Use
  Company Number: US-GILEAD-2015-0136532

PATIENT
  Age: 65 Year
  Sex: Female
  Weight: 63.04 kg

DRUGS (2)
  1. SOVALDI [Suspect]
     Active Substance: SOFOSBUVIR
     Indication: HEPATITIS C
     Dosage: 400 MG, QD
     Route: 048
     Dates: start: 20140729, end: 20141027
  2. RIBASPHERE RIBAPAK [Suspect]
     Active Substance: RIBAVIRIN
     Indication: HEPATITIS C
     Dosage: 5 DOSAGE FORM, QD
     Route: 048
     Dates: start: 20140729, end: 20141027

REACTIONS (14)
  - Arthralgia [Recovering/Resolving]
  - Pruritus [Recovering/Resolving]
  - Cold sweat [Recovering/Resolving]
  - Rash [Recovering/Resolving]
  - Photosensitivity reaction [Recovering/Resolving]
  - Feeling cold [Recovering/Resolving]
  - Nausea [Recovering/Resolving]
  - Depression [Recovering/Resolving]
  - Fatigue [Recovering/Resolving]
  - Memory impairment [Recovering/Resolving]
  - Anxiety [Recovering/Resolving]
  - Abdominal discomfort [Unknown]
  - Visual impairment [Recovering/Resolving]
  - Hyperhidrosis [Recovering/Resolving]
